FAERS Safety Report 6864652-9 (Version None)
Quarter: 2010Q3

REPORT INFORMATION
  Report Type: 
  Country: None (occurrence: None)
  Receive Date: 20100721
  Receipt Date: 20080520
  Transmission Date: 20110219
  Serious: Yes (Other)
  Sender: FDA-Public Use
  Company Number: US-PFIZER INC-2008028667

PATIENT
  Sex: Male
  Weight: 91.2 kg

DRUGS (12)
  1. CHANTIX [Suspect]
     Indication: SMOKING CESSATION THERAPY
     Dates: start: 20071201, end: 20080324
  2. CHANTIX [Suspect]
     Indication: TOBACCO USER
  3. LIPITOR [Suspect]
     Indication: BLOOD CHOLESTEROL
     Dosage: 40MG QD EVERY DAY TDD:40MG
     Dates: start: 20071201, end: 20080201
  4. TRAZODONE HYDROCHLORIDE [Concomitant]
  5. LEVOTHYROXINE SODIUM [Concomitant]
  6. AMBIEN [Concomitant]
  7. PERCOCET [Concomitant]
  8. PAXIL [Concomitant]
  9. LISINOPRIL [Concomitant]
  10. ACETYLSALICYLIC ACID [Concomitant]
  11. LOPRESSOR [Concomitant]
  12. ALBUTEROL [Concomitant]
     Route: 055

REACTIONS (5)
  - ARTHRALGIA [None]
  - CHEST PAIN [None]
  - INSOMNIA [None]
  - PAIN IN EXTREMITY [None]
  - PARAESTHESIA [None]
